FAERS Safety Report 18347358 (Version 1)
Quarter: 2020Q4

REPORT INFORMATION
  Report Type: Other
  Country: GB (occurrence: GB)
  Receive Date: 20201006
  Receipt Date: 20201006
  Transmission Date: 20210114
  Serious: Yes (Hospitalization)
  Sender: FDA-Public Use
  Company Number: GB-ROCHE-2689539

PATIENT
  Age: 34 Year
  Sex: Female

DRUGS (3)
  1. NITRAZEPAM [Suspect]
     Active Substance: NITRAZEPAM
     Indication: DYSMENORRHOEA
     Dosage: UNK
     Route: 065
  2. LORAZEPAM. [Suspect]
     Active Substance: LORAZEPAM
     Indication: DYSMENORRHOEA
     Dosage: UNK
     Route: 065
  3. DIAZEPAM. [Suspect]
     Active Substance: DIAZEPAM
     Indication: DYSMENORRHOEA
     Dosage: UNK
     Route: 065

REACTIONS (1)
  - Drug withdrawal syndrome [Unknown]
